FAERS Safety Report 23402748 (Version 1)
Quarter: 2024Q1

REPORT INFORMATION
  Report Type: Spontaneous
  Country: US (occurrence: US)
  Receive Date: 20240115
  Receipt Date: 20240115
  Transmission Date: 20240410
  Serious: No
  Sender: FDA-Public Use
  Company Number: US-BAUSCH-BL-2024-000448

PATIENT
  Age: 60 Year
  Sex: Female

DRUGS (2)
  1. JUBLIA [Suspect]
     Active Substance: EFINACONAZOLE
     Indication: Onychomycosis
     Route: 061
  2. JUBLIA [Suspect]
     Active Substance: EFINACONAZOLE
     Route: 061

REACTIONS (2)
  - Application site pain [Unknown]
  - Inappropriate schedule of product administration [Unknown]
